FAERS Safety Report 10049835 (Version 1)
Quarter: 2014Q1

REPORT INFORMATION
  Report Type: Spontaneous
  Country: DE (occurrence: None)
  Receive Date: 20140328
  Receipt Date: 20140328
  Transmission Date: 20141002
  Serious: Yes (Hospitalization)
  Sender: FDA-Public Use
  Company Number: SYM-2014-18789

PATIENT
  Sex: Male

DRUGS (1)
  1. ELONTRIL [Suspect]
     Indication: PRODUCT USED FOR UNKNOWN INDICATION
     Route: 048

REACTIONS (12)
  - Accidental overdose [None]
  - Gastrointestinal disorder [None]
  - Sleep disorder [None]
  - Nausea [None]
  - Constipation [None]
  - Rectal haemorrhage [None]
  - Rectal fissure [None]
  - Anxiety [None]
  - Depression suicidal [None]
  - Mood swings [None]
  - Organ failure [None]
  - Renal failure [None]
